FAERS Safety Report 10369181 (Version 2)
Quarter: 2014Q3

REPORT INFORMATION
  Report Type: Spontaneous
  Country: US (occurrence: US)
  Receive Date: 20140807
  Receipt Date: 20140807
  Transmission Date: 20150326
  Serious: Yes (Other)
  Sender: FDA-Public Use
  Company Number: 2014SP002463

PATIENT

DRUGS (2)
  1. LATUDA [Suspect]
     Active Substance: LURASIDONE HYDROCHLORIDE
     Route: 063
  2. LATUDA [Suspect]
     Active Substance: LURASIDONE HYDROCHLORIDE
     Route: 015

REACTIONS (4)
  - Tremor neonatal [Unknown]
  - Convulsion [Unknown]
  - Exposure during breast feeding [None]
  - Foetal exposure during pregnancy [None]

NARRATIVE: CASE EVENT DATE: 2014
